FAERS Safety Report 7701548-4 (Version None)
Quarter: 2011Q3

REPORT INFORMATION
  Report Type: 
  Country: None (occurrence: None)
  Receive Date: 20110822
  Receipt Date: 20110811
  Transmission Date: 20111222
  Serious: Yes (Death, Other)
  Sender: FDA-Public Use
  Company Number: MY-GENZYME-CLOF-1001674

PATIENT
  Sex: Female

DRUGS (8)
  1. CLOFARABINE [Suspect]
     Indication: ACUTE LYMPHOCYTIC LEUKAEMIA
     Dosage: 40 MG/M2 INFUSED OVER 2 HRS ON DAYS 1-5
     Route: 042
     Dates: start: 20090720, end: 20090725
  2. MESNA [Concomitant]
     Indication: PREMEDICATION
     Dosage: 180 MG/M2 TID AT 0, 4 AND 8 HRS PRE-CYCLOPHOSPHAMIDE
     Route: 042
  3. FLUDARA [Suspect]
     Indication: ACUTE LYMPHOCYTIC LEUKAEMIA
     Dosage: UNK
     Route: 065
     Dates: start: 20090801
  4. CYCLOPHOSPHAMIDE [Suspect]
     Indication: ACUTE LYMPHOCYTIC LEUKAEMIA
     Dosage: 440 MG/M2 INFUSED OVER 1 HR ON DAYS 1-5
     Route: 042
     Dates: start: 20090720, end: 20090725
  5. ETOPOSIDE [Suspect]
     Indication: ACUTE LYMPHOCYTIC LEUKAEMIA
     Dosage: 100 MG/M2 INFUSED OVER 2 HRS ON DAYS 1-5
     Route: 042
     Dates: start: 20090720, end: 20090725
  6. CYTARABINE [Suspect]
     Indication: ACUTE LYMPHOCYTIC LEUKAEMIA
     Dosage: UNK
     Route: 065
     Dates: start: 20090801
  7. NEUPOGEN [Suspect]
     Indication: ACUTE LYMPHOCYTIC LEUKAEMIA
     Dosage: UNK
     Route: 065
     Dates: start: 20090801
  8. METHYLPREDNISOLONE [Concomitant]
     Indication: PREMEDICATION
     Dosage: 0.5 MG/KG, QD
     Route: 042

REACTIONS (11)
  - WHITE BLOOD CELL COUNT DECREASED [None]
  - PULMONARY HAEMORRHAGE [None]
  - ENGRAFTMENT SYNDROME [None]
  - PLATELET COUNT DECREASED [None]
  - NEUTROPHIL COUNT INCREASED [None]
  - CORD BLOOD TRANSPLANT THERAPY [None]
  - PNEUMOCYSTIS JIROVECI PNEUMONIA [None]
  - WHITE BLOOD CELL COUNT INCREASED [None]
  - PNEUMONIA CYTOMEGALOVIRAL [None]
  - NEUTROPHIL COUNT DECREASED [None]
  - HAEMOGLOBIN DECREASED [None]
